FAERS Safety Report 19478071 (Version 1)
Quarter: 2021Q2

REPORT INFORMATION
  Report Type: Spontaneous
  Country: US (occurrence: US)
  Receive Date: 20210630
  Receipt Date: 20210630
  Transmission Date: 20210717
  Serious: No
  Sender: FDA-Public Use
  Company Number: NVSC2021US145764

PATIENT
  Age: 80 Year
  Sex: Male
  Weight: 77.55 kg

DRUGS (1)
  1. VALSARTAN. [Suspect]
     Active Substance: VALSARTAN
     Indication: PRODUCT USED FOR UNKNOWN INDICATION
     Dosage: UNK
     Route: 065

REACTIONS (6)
  - Weight decreased [Unknown]
  - Chapped lips [Unknown]
  - Dry mouth [Unknown]
  - Product odour abnormal [Unknown]
  - Anosmia [Unknown]
  - Taste disorder [Unknown]
